FAERS Safety Report 16415768 (Version 1)
Quarter: 2019Q2

REPORT INFORMATION
  Report Type: Spontaneous
  Country: US (occurrence: US)
  Receive Date: 20190611
  Receipt Date: 20190611
  Transmission Date: 20190711
  Serious: No
  Sender: FDA-Public Use
  Company Number: US-SA-2019SA156134

PATIENT
  Sex: Female

DRUGS (7)
  1. HYDROCHLOROTHIAZIDE AND LISINOPRIL [Concomitant]
     Active Substance: HYDROCHLOROTHIAZIDE\LISINOPRIL
  2. METHYLPHENIDATE HYDROCHLORIDE. [Concomitant]
     Active Substance: METHYLPHENIDATE HYDROCHLORIDE
  3. ACTONEL [Concomitant]
     Active Substance: RISEDRONATE SODIUM
  4. FLUOXETINE HCL [Concomitant]
     Active Substance: FLUOXETINE HYDROCHLORIDE
  5. VAGIFEM [Concomitant]
     Active Substance: ESTRADIOL
  6. AUBAGIO [Suspect]
     Active Substance: TERIFLUNOMIDE
     Dosage: 14 MG
  7. PENNSAID [Concomitant]
     Active Substance: DICLOFENAC SODIUM

REACTIONS (1)
  - Product dose omission [Unknown]
